FAERS Safety Report 6297736-7 (Version None)
Quarter: 2009Q3

REPORT INFORMATION
  Report Type: 
  Country: None (occurrence: None)
  Receive Date: 20090804
  Receipt Date: 20090804
  Transmission Date: 20100115
  Serious: Yes (Other)
  Sender: FDA-Public Use
  Company Number: None

PATIENT
  Age: 56 Year
  Sex: Female
  Weight: 83.9154 kg

DRUGS (1)
  1. ZICAM NASAL GEN RED LABEL ^COLD REMEDYA^ MATRIXX [Suspect]
     Indication: BRONCHIAL IRRITATION
     Dosage: 1-2 DROPS IN NOSE
     Dates: start: 20080710, end: 20080712

REACTIONS (4)
  - AGEUSIA [None]
  - ANOSMIA [None]
  - HYPOGEUSIA [None]
  - HYPOSMIA [None]
